FAERS Safety Report 4654046-9 (Version None)
Quarter: 2005Q2

REPORT INFORMATION
  Report Type: 
  Country: None (occurrence: None)
  Receive Date: 20050404
  Receipt Date: 20050112
  Transmission Date: 20051028
  Serious: No
  Sender: FDA-Public Use
  Company Number: USA050188168

PATIENT
  Age: 56 Year
  Sex: Male

DRUGS (4)
  1. CYMBALTA [Suspect]
     Indication: DEPRESSION
     Dosage: 30 MG
     Dates: start: 20050107
  2. PREVACID [Concomitant]
  3. PEPCID [Concomitant]
  4. LORTAB [Concomitant]

REACTIONS (5)
  - ABDOMINAL PAIN UPPER [None]
  - AGITATION [None]
  - CHEST PAIN [None]
  - HEADACHE [None]
  - NAUSEA [None]
